FAERS Safety Report 13940285 (Version 2)
Quarter: 2017Q4

REPORT INFORMATION
  Report Type: Report from Study
  Country: US (occurrence: US)
  Receive Date: 20170906
  Receipt Date: 20171016
  Transmission Date: 20180320
  Serious: Yes (Death, Hospitalization)
  Sender: FDA-Public Use
  Company Number: US-SUN PHARMACEUTICAL INDUSTRIES LTD-2017US-149267

PATIENT
  Age: 68 Year
  Sex: Female
  Weight: 73.9 kg

DRUGS (13)
  1. PACLITAXEL COMP-PAC+ [Suspect]
     Active Substance: PACLITAXEL
     Indication: OVARIAN CANCER
     Dosage: UNK
     Route: 042
     Dates: start: 20141216
  2. PACLITAXEL COMP-PAC+ [Suspect]
     Active Substance: PACLITAXEL
     Dosage: UNK
     Route: 042
     Dates: start: 20141014
  3. PACLITAXEL COMP-PAC+ [Suspect]
     Active Substance: PACLITAXEL
     Dosage: UNK
     Route: 042
     Dates: start: 20141028
  4. LOVENOX [Concomitant]
     Active Substance: ENOXAPARIN SODIUM
     Indication: PRODUCT USED FOR UNKNOWN INDICATION
     Dosage: UNK
     Route: 065
  5. SONIDEGIB [Suspect]
     Active Substance: SONIDEGIB
     Dosage: 200 MG, QD
     Route: 048
     Dates: start: 20140915, end: 20141208
  6. SONIDEGIB [Suspect]
     Active Substance: SONIDEGIB
     Indication: OVARIAN CANCER
     Dosage: 200 MG, QD
     Route: 048
     Dates: start: 20141216
  7. PACLITAXEL COMP-PAC+ [Suspect]
     Active Substance: PACLITAXEL
     Dosage: UNK
     Route: 042
     Dates: start: 20140922
  8. PACLITAXEL COMP-PAC+ [Suspect]
     Active Substance: PACLITAXEL
     Dosage: UNK
     Route: 042
     Dates: start: 20141021
  9. PACLITAXEL COMP-PAC+ [Suspect]
     Active Substance: PACLITAXEL
     Dosage: UNK
     Route: 042
     Dates: start: 20141111
  10. PACLITAXEL COMP-PAC+ [Suspect]
     Active Substance: PACLITAXEL
     Dosage: UNK
     Route: 042
     Dates: start: 20141118
  11. PACLITAXEL COMP-PAC+ [Suspect]
     Active Substance: PACLITAXEL
     Dosage: UNK
     Route: 042
     Dates: start: 20140915
  12. PACLITAXEL COMP-PAC+ [Suspect]
     Active Substance: PACLITAXEL
     Dosage: UNK
     Route: 042
     Dates: start: 20140929
  13. PACLITAXEL COMP-PAC+ [Suspect]
     Active Substance: PACLITAXEL
     Dosage: UNK
     Route: 042
     Dates: start: 20141125

REACTIONS (6)
  - Delirium [Fatal]
  - Anaemia [Recovered/Resolved]
  - Hypercalcaemia [Recovered/Resolved]
  - Anaemia [Recovered/Resolved]
  - Ascites [Fatal]
  - Urinary tract infection staphylococcal [Recovered/Resolved]

NARRATIVE: CASE EVENT DATE: 20141111
